FAERS Safety Report 9795894 (Version 1)
Quarter: 2014Q1

REPORT INFORMATION
  Report Type: Spontaneous
  Country: TW (occurrence: TW)
  Receive Date: 20140103
  Receipt Date: 20140103
  Transmission Date: 20141002
  Serious: Yes (Other)
  Sender: FDA-Public Use
  Company Number: TW-TEVA-453551ISR

PATIENT
  Age: 5 Decade
  Sex: Female

DRUGS (3)
  1. CISPLATIN [Suspect]
     Indication: ADENOID CYSTIC CARCINOMA
     Dosage: 60 MG/M2
     Route: 065
  2. TAXOL [Suspect]
     Indication: ADENOID CYSTIC CARCINOMA
     Dosage: 135 MG/M2
     Route: 065
  3. TAXOTERE [Suspect]
     Indication: ADENOID CYSTIC CARCINOMA
     Route: 065

REACTIONS (2)
  - Anaphylactic shock [Unknown]
  - Rash erythematous [Unknown]
